FAERS Safety Report 13558279 (Version 1)
Quarter: 2017Q2

REPORT INFORMATION
  Report Type: Spontaneous
  Country: US (occurrence: US)
  Receive Date: 20170517
  Receipt Date: 20170517
  Transmission Date: 20170830
  Serious: No
  Sender: FDA-Public Use
  Company Number: US-ASTRAZENECA-2017SE51596

PATIENT
  Age: 15491 Day
  Sex: Female
  Weight: 77.1 kg

DRUGS (2)
  1. SYMBICORT [Suspect]
     Active Substance: BUDESONIDE\FORMOTEROL FUMARATE DIHYDRATE
     Indication: ASTHMA
     Dosage: 160/4.5MCG 2 PUFFS, TWO TIMES A DAY
     Route: 055
     Dates: start: 20170509
  2. PROAIR HFA [Concomitant]
     Active Substance: ALBUTEROL SULFATE
     Indication: SUPPLEMENTATION THERAPY
     Dosage: AS REQUIRED
     Route: 055
     Dates: start: 20170508

REACTIONS (3)
  - Dyspnoea [Unknown]
  - Malaise [Unknown]
  - Chest discomfort [Unknown]

NARRATIVE: CASE EVENT DATE: 20170509
